FAERS Safety Report 15304581 (Version 1)
Quarter: 2018Q3

REPORT INFORMATION
  Report Type: Spontaneous
  Country: US (occurrence: US)
  Receive Date: 20180809
  Receipt Date: 20180809
  Transmission Date: 20181010
  Serious: Yes (Life-Threatening, Disabling)
  Sender: FDA-Public Use
  Company Number: None

PATIENT
  Age: 68 Year
  Sex: Male
  Weight: 108.45 kg

DRUGS (12)
  1. TRAZODONE HYDROCHLORIDE. [Concomitant]
     Active Substance: TRAZODONE HYDROCHLORIDE
  2. CABOMETYX [Concomitant]
     Active Substance: CABOZANTINIB S-MALATE
  3. MULTI?VITAMIN [Concomitant]
     Active Substance: .ALPHA.-TOCOPHEROL ACETATE, DL-\ASCORBIC ACID\CYANOCOBALAMIN\FLUORIDE ION\FOLIC ACID\NIACIN\PYRIDOXINE\RIBOFLAVIN\THIAMINE\VITAMIN A\VITAMIN D
  4. ZANTAK [Concomitant]
  5. CALCIUM [Concomitant]
     Active Substance: CALCIUM
  6. VALSARTAN HTZ 160/12.5 [Suspect]
     Active Substance: HYDROCHLOROTHIAZIDE\VALSARTAN
     Indication: BLOOD PRESSURE MANAGEMENT
     Dosage: ?          QUANTITY:1 TABLET(S);?
     Route: 048
     Dates: start: 20000101, end: 20180801
  7. METOPROLOL SUCCINATE. [Concomitant]
     Active Substance: METOPROLOL SUCCINATE
  8. MAGNESIUM [Concomitant]
     Active Substance: MAGNESIUM
  9. MIRALAX [Concomitant]
     Active Substance: POLYETHYLENE GLYCOL 3350
  10. HYDROCHLOROTHIAZIDE. [Concomitant]
     Active Substance: HYDROCHLOROTHIAZIDE
  11. MORPHINE SULFATE ER [Concomitant]
     Active Substance: MORPHINE SULFATE
  12. GENERIC STOOL SOFTENER [Concomitant]

REACTIONS (2)
  - Recalled product [None]
  - Papillary renal cell carcinoma [None]

NARRATIVE: CASE EVENT DATE: 20171226
